FAERS Safety Report 25319989 (Version 2)
Quarter: 2025Q3

REPORT INFORMATION
  Report Type: Spontaneous
  Country: EU (occurrence: EU)
  Receive Date: 20250515
  Receipt Date: 20250809
  Transmission Date: 20251020
  Serious: Yes (Hospitalization)
  Sender: ALEXION PHARMACEUTICALS
  Company Number: EU-Orion Corporation ORION PHARMA-SPIR2025-0010

PATIENT
  Age: 77 Year
  Sex: Male

DRUGS (9)
  1. DAPAGLIFLOZIN [Suspect]
     Active Substance: DAPAGLIFLOZIN
     Indication: Heart failure with reduced ejection fraction
     Dosage: STRENGTH: 10 MG
     Route: 065
     Dates: start: 2024
  2. SPIRONOLACTONE [Suspect]
     Active Substance: SPIRONOLACTONE
     Indication: Heart failure with reduced ejection fraction
     Dosage: STRENGTH: 25 MG, (1,0,0)
     Route: 065
     Dates: start: 2024, end: 2024
  3. EDOXABAN [Suspect]
     Active Substance: EDOXABAN
     Indication: Atrial fibrillation
     Dosage: STRENGTH: 30 MG
     Route: 065
     Dates: start: 2019, end: 2023
  4. EDOXABAN [Suspect]
     Active Substance: EDOXABAN
     Dosage: STRENGTH: 30 MG, DOSE REDUCED
     Route: 065
     Dates: start: 2023
  5. EDOXABAN [Suspect]
     Active Substance: EDOXABAN
     Route: 065
  6. CARVEDILOL [Concomitant]
     Active Substance: CARVEDILOL
     Indication: Heart failure with reduced ejection fraction
     Dosage: STRENGTH: 25 MG, (1,0,1)
     Dates: start: 2024
  7. CARVEDILOL [Concomitant]
     Active Substance: CARVEDILOL
  8. SACUBITRIL\VALSARTAN [Concomitant]
     Active Substance: SACUBITRIL\VALSARTAN
     Indication: Heart failure with reduced ejection fraction
  9. SACUBITRIL\VALSARTAN [Concomitant]
     Active Substance: SACUBITRIL\VALSARTAN

REACTIONS (1)
  - Hyperkalaemia [Recovered/Resolved]

NARRATIVE: CASE EVENT DATE: 20240101
